FAERS Safety Report 20416104 (Version 1)
Quarter: 2022Q1

REPORT INFORMATION
  Report Type: Spontaneous
  Country: US (occurrence: US)
  Receive Date: 20220202
  Receipt Date: 20220202
  Transmission Date: 20220424
  Serious: No
  Sender: FDA-Public Use
  Company Number: US-LANNETT COMPANY, INC.-US-2021LAN000151

PATIENT
  Sex: Female

DRUGS (3)
  1. BACLOFEN [Suspect]
     Active Substance: BACLOFEN
     Indication: Eructation
     Dosage: 30 MG, QD
     Route: 065
     Dates: end: 2021
  2. BACLOFEN [Suspect]
     Active Substance: BACLOFEN
     Dosage: 10 MG, QD
     Route: 065
     Dates: start: 202104, end: 202104
  3. BACLOFEN [Suspect]
     Active Substance: BACLOFEN
     Dosage: 20 MG, QD
     Route: 065
     Dates: start: 202104

REACTIONS (3)
  - Eructation [Unknown]
  - Headache [Unknown]
  - Drug ineffective [Unknown]

NARRATIVE: CASE EVENT DATE: 20210101
